FAERS Safety Report 25845027 (Version 1)
Quarter: 2025Q3

REPORT INFORMATION
  Report Type: Spontaneous
  Country: EU (occurrence: EU)
  Receive Date: 20250925
  Receipt Date: 20250925
  Transmission Date: 20251020
  Serious: Yes (Other)
  Sender: MELINTA THERAPEUTICS
  Company Number: EU-CDSU_IT-PT-MEN-116951

PATIENT

DRUGS (5)
  1. ORITAVANCIN [Suspect]
     Active Substance: ORITAVANCIN
     Indication: Product used for unknown indication
     Route: 042
     Dates: start: 202508, end: 202508
  2. WARFARIN [Concomitant]
     Active Substance: WARFARIN
     Route: 065
  3. AMIODARONE [Concomitant]
     Active Substance: AMIODARONE
     Route: 065
  4. SILDENAFIL [Concomitant]
     Active Substance: SILDENAFIL
     Route: 065
  5. ACETAZOLAMIDE [Concomitant]
     Active Substance: ACETAZOLAMIDE
     Route: 065

REACTIONS (2)
  - Oedema [Unknown]
  - Cardiac failure chronic [Unknown]

NARRATIVE: CASE EVENT DATE: 20250101
